FAERS Safety Report 6355657-5 (Version None)
Quarter: 2009Q3

REPORT INFORMATION
  Report Type: 
  Country: None (occurrence: None)
  Receive Date: 20090910
  Receipt Date: 20090827
  Transmission Date: 20100115
  Serious: Yes (Death)
  Sender: FDA-Public Use
  Company Number: 007387

PATIENT
  Age: 60 Year
  Sex: Male

DRUGS (2)
  1. PLETAL [Suspect]
     Indication: ARTERIOSCLEROSIS OBLITERANS
     Dosage: 100 MG, TID ORAL; 100 MG, BID, ORAL
     Route: 048
     Dates: start: 20080613, end: 20080619
  2. PLETAL [Suspect]
     Indication: ARTERIOSCLEROSIS OBLITERANS
     Dosage: 100 MG, TID ORAL; 100 MG, BID, ORAL
     Route: 048
     Dates: start: 20080620, end: 20081107

REACTIONS (1)
  - DEATH [None]
